FAERS Safety Report 6208814-2 (Version None)
Quarter: 2009Q2

REPORT INFORMATION
  Report Type: 
  Country: None (occurrence: None)
  Receive Date: 20090529
  Receipt Date: 20090520
  Transmission Date: 20091009
  Serious: Yes (Hospitalization)
  Sender: FDA-Public Use
  Company Number: A0727752A

PATIENT
  Age: 63 Year
  Sex: Female
  Weight: 90.9 kg

DRUGS (32)
  1. AVANDIA [Suspect]
     Dosage: 8MG PER DAY
     Route: 048
     Dates: start: 20000421
  2. OXYBUTYNIN CHLORIDE [Concomitant]
     Dosage: 5MG PER DAY
  3. PANTOPRAZOLE SODIUM [Concomitant]
     Dosage: 40MG THREE TIMES PER DAY
  4. SODIUM CHLORIDE [Concomitant]
  5. ACETAMINOPHEN [Concomitant]
     Dosage: 650MG AS REQUIRED
  6. ALPRAZOLAM [Concomitant]
  7. ATROPINE SULFATE [Concomitant]
  8. BISACODYL [Concomitant]
  9. DOCUSATE SODIUM [Concomitant]
  10. DOLASETRON [Concomitant]
  11. TEMAZEPAM [Concomitant]
  12. PERCOCET [Concomitant]
  13. NITROGLYCERIN [Concomitant]
  14. OPIUM/BELLADONNA [Concomitant]
  15. NITROGLYCERIN [Concomitant]
  16. SODIUM PHOSPHATES [Concomitant]
  17. MORPHINE SULFATE [Concomitant]
  18. VERSED [Concomitant]
  19. MAALOX [Concomitant]
  20. GUAIFENESIN CODEINE [Concomitant]
  21. ALTACE [Concomitant]
     Dosage: 5MG PER DAY
  22. PLAVIX [Concomitant]
     Dosage: 75MG PER DAY
  23. CELEBREX [Concomitant]
     Dosage: 200MG TWICE PER DAY
  24. LASIX [Concomitant]
     Dosage: 40MG PER DAY
  25. ASPIRIN [Concomitant]
     Dosage: 81MG PER DAY
  26. LOPRESSOR [Concomitant]
     Dosage: 25MG TWICE PER DAY
  27. INSULIN [Concomitant]
  28. CARDIZEM [Concomitant]
     Dosage: 240MG PER DAY
  29. TOPROL-XL [Concomitant]
     Dosage: 100MG PER DAY
  30. MULTI-VITAMIN [Concomitant]
  31. VITAMIN E [Concomitant]
  32. ASCORBIC ACID [Concomitant]

REACTIONS (2)
  - CORONARY ARTERY DISEASE [None]
  - MYOCARDIAL INFARCTION [None]
